FAERS Safety Report 20967691 (Version 1)
Quarter: 2022Q2

REPORT INFORMATION
  Report Type: Spontaneous
  Country: ES (occurrence: ES)
  Receive Date: 20220616
  Receipt Date: 20220616
  Transmission Date: 20220721
  Serious: Yes (Hospitalization)
  Sender: FDA-Public Use
  Company Number: None

PATIENT
  Age: 59 Year
  Sex: Male

DRUGS (5)
  1. AMOXICILLIN\CLAVULANIC ACID [Suspect]
     Active Substance: AMOXICILLIN\CLAVULANIC ACID
     Indication: Urinary tract infection
     Dosage: AMOXICILINA + ACIDO CLAVULANICO
     Route: 048
     Dates: start: 20220526, end: 20220527
  2. AMOXICILLIN\CLAVULANIC ACID [Suspect]
     Active Substance: AMOXICILLIN\CLAVULANIC ACID
     Route: 042
     Dates: start: 20220525, end: 20220525
  3. CEFTRIAXONE [Suspect]
     Active Substance: CEFTRIAXONE
     Indication: Urinary tract infection
     Dosage: CEFTRIAXONA (501A)
     Route: 042
     Dates: start: 20220523, end: 20220525
  4. RIVOTRIL [Concomitant]
     Active Substance: CLONAZEPAM
     Dosage: 60 TABLETS
     Route: 048
     Dates: start: 20180117
  5. PAROXETINE [Concomitant]
     Active Substance: PAROXETINE
     Dosage: PAROXETINA (2586A)
     Route: 048
     Dates: start: 20220201

REACTIONS (1)
  - Hypertransaminasaemia [Recovering/Resolving]

NARRATIVE: CASE EVENT DATE: 20220525
